FAERS Safety Report 10648751 (Version 1)
Quarter: 2014Q4

REPORT INFORMATION
  Report Type: Spontaneous
  Country: US (occurrence: US)
  Receive Date: 20141212
  Receipt Date: 20141212
  Transmission Date: 20150529
  Serious: No
  Sender: FDA-Public Use
  Company Number: US-PFIZER INC-2014341499

PATIENT
  Age: 21 Year
  Sex: Male
  Weight: 66 kg

DRUGS (3)
  1. XANAX [Suspect]
     Active Substance: ALPRAZOLAM
     Indication: PANIC ATTACK
     Dosage: 1 MG, 2-3 TIMES PER WEEK
     Route: 048
     Dates: start: 201406, end: 2014
  2. XANAX [Suspect]
     Active Substance: ALPRAZOLAM
     Indication: ANXIETY
     Dosage: UNK
     Route: 048
     Dates: start: 2014, end: 2014
  3. XANAX [Suspect]
     Active Substance: ALPRAZOLAM
     Dosage: 2.5 MG, DAILY
     Route: 048
     Dates: start: 2014, end: 20141130

REACTIONS (4)
  - Drug ineffective [Not Recovered/Not Resolved]
  - Condition aggravated [Not Recovered/Not Resolved]
  - Drug withdrawal syndrome [Not Recovered/Not Resolved]
  - Drug withdrawal headache [Not Recovered/Not Resolved]

NARRATIVE: CASE EVENT DATE: 201406
